FAERS Safety Report 14999764 (Version 1)
Quarter: 2018Q2

REPORT INFORMATION
  Report Type: Spontaneous
  Country: US (occurrence: US)
  Receive Date: 20180523
  Receipt Date: 20180523
  Transmission Date: 20180711
  Serious: Yes (Disabling, Other)
  Sender: FDA-Public Use
  Company Number: None

PATIENT
  Age: 15 Year
  Sex: Female
  Weight: 49.05 kg

DRUGS (1)
  1. MYORISAN [Suspect]
     Active Substance: ISOTRETINOIN
     Indication: ACNE
     Dosage: ?          QUANTITY:1 DF DOSAGE FORM;?
     Route: 048
     Dates: start: 20171009, end: 20180318

REACTIONS (12)
  - Psychotic disorder [None]
  - Myalgia [None]
  - Vision blurred [None]
  - Anxiety [None]
  - Insomnia [None]
  - Gastrointestinal disorder [None]
  - Back pain [None]
  - Depression [None]
  - Headache [None]
  - Fatigue [None]
  - Arthralgia [None]
  - Educational problem [None]

NARRATIVE: CASE EVENT DATE: 20180312
